FAERS Safety Report 7321074-4 (Version None)
Quarter: 2011Q1

REPORT INFORMATION
  Report Type: 
  Country: None (occurrence: None)
  Receive Date: 20110228
  Receipt Date: 20110225
  Transmission Date: 20110831
  Serious: Yes (Death, Hospitalization)
  Sender: FDA-Public Use
  Company Number: FR-GENZYME-CAMP-1001138

PATIENT
  Sex: Male
  Weight: 65 kg

DRUGS (6)
  1. PEGFILGRASTIM [Suspect]
     Indication: NEUTROPENIA
     Dosage: 6 MG, UNK
     Route: 058
     Dates: start: 20090515
  2. DEXAMETHASONE [Suspect]
     Dosage: 40 MG, UNK
     Route: 048
     Dates: start: 20090515
  3. AUGMENTIN '125' [Concomitant]
     Indication: PRODUCT USED FOR UNKNOWN INDICATION
  4. CIFLOX [Concomitant]
     Indication: PRODUCT USED FOR UNKNOWN INDICATION
     Route: 065
  5. BACTIN [Concomitant]
     Indication: PRODUCT USED FOR UNKNOWN INDICATION
     Route: 065
  6. CAMPATH [Suspect]
     Indication: CHRONIC LYMPHOCYTIC LEUKAEMIA
     Dosage: 30 MG, UNK
     Route: 058
     Dates: start: 20090515

REACTIONS (4)
  - INTRACRANIAL PRESSURE INCREASED [None]
  - HYDROCEPHALUS [None]
  - ENCEPHALITIS [None]
  - PNEUMOCYSTIS JIROVECI PNEUMONIA [None]
